FAERS Safety Report 25439939 (Version 1)
Quarter: 2025Q2

REPORT INFORMATION
  Report Type: Spontaneous
  Country: US (occurrence: US)
  Receive Date: 20250616
  Receipt Date: 20250616
  Transmission Date: 20250716
  Serious: No
  Sender: ITALFARMACO SPA
  Company Number: US-ITALFARMACO SPA-2178770

PATIENT
  Age: 13 Year
  Sex: Male
  Weight: 69.50 kg

DRUGS (10)
  1. DUVYZAT [Suspect]
     Active Substance: GIVINOSTAT
     Dates: start: 20241026
  2. CARVEDILOL [Concomitant]
     Active Substance: CARVEDILOL
  3. FENOFIBRATE [Concomitant]
     Active Substance: FENOFIBRATE
  4. ZINC [Concomitant]
     Active Substance: ZINC
  5. MAGNESIUM [Concomitant]
     Active Substance: MAGNESIUM
  6. LISINOPRIL [Concomitant]
     Active Substance: LISINOPRIL
  7. EMFLAZA [Concomitant]
     Active Substance: DEFLAZACORT
  8. COQ [Concomitant]
  9. VITAMIN D [Concomitant]
     Active Substance: VITAMIN D NOS
  10. EPLERENONE [Concomitant]
     Active Substance: EPLERENONE

REACTIONS (1)
  - Blood triglycerides increased [Unknown]
